FAERS Safety Report 11874326 (Version 2)
Quarter: 2016Q1

REPORT INFORMATION
  Report Type: Report from Study
  Country: JP (occurrence: JP)
  Receive Date: 20151229
  Receipt Date: 20160219
  Transmission Date: 20160526
  Serious: Yes (Death)
  Sender: FDA-Public Use
  Company Number: JP-009507513-1311JPN000943

PATIENT
  Age: 41 Year
  Sex: Male
  Weight: 72 kg

DRUGS (24)
  1. TEMOZOLOMIDE. [Suspect]
     Active Substance: TEMOZOLOMIDE
     Indication: GLIOBLASTOMA MULTIFORME
     Dosage: 200 MG/M2, QD
     Route: 041
     Dates: start: 20130815, end: 20130819
  2. TEMOZOLOMIDE. [Suspect]
     Active Substance: TEMOZOLOMIDE
     Dosage: 200 MG/M2, QD
     Route: 041
     Dates: start: 20130912, end: 20130916
  3. KEPPRA [Concomitant]
     Active Substance: LEVETIRACETAM
     Dosage: DAILY DOSE UNKNOWN, FORMULATION POR
     Route: 048
     Dates: end: 20140526
  4. NASEA [Concomitant]
     Active Substance: RAMOSETRON HYDROCHLORIDE
     Indication: PROPHYLAXIS
     Dosage: DAILY DOSE UNKNOWN, FORMULATION POR
     Route: 048
     Dates: start: 20130815, end: 20140411
  5. AVASTIN [Concomitant]
     Active Substance: BEVACIZUMAB
     Dosage: DAILY DOSE UNKNOWN
     Route: 041
     Dates: start: 20130815, end: 20140320
  6. TEMOZOLOMIDE. [Suspect]
     Active Substance: TEMOZOLOMIDE
     Dosage: 200 MG/M2, QD
     Route: 041
     Dates: start: 20140106, end: 20140110
  7. CIMETIDINE [Concomitant]
     Active Substance: CIMETIDINE
     Indication: PROPHYLAXIS
     Dosage: DAILY DOSE UNKNOWN, FORMULATION POR
     Route: 048
     Dates: end: 20140910
  8. MAGMITT [Concomitant]
     Active Substance: MAGNESIUM OXIDE
     Dosage: DAILY DOSE UNKNOWN, FORMULATION POR
     Route: 048
     Dates: end: 20140330
  9. ELECTROLYTES (UNSPECIFIED) (+) SODIUM LACTATE [Concomitant]
     Active Substance: ELECTROLYTES NOS\SODIUM LACTATE
     Dosage: DAILY DOSE UNKNOWN
     Route: 041
     Dates: start: 20130815, end: 20140213
  10. TEMOZOLOMIDE. [Suspect]
     Active Substance: TEMOZOLOMIDE
     Dosage: 200 MG/M2, QD
     Route: 041
     Dates: start: 20140203, end: 20140207
  11. GLYCERIN F [Concomitant]
     Dosage: DAILY DOSE UNKNOWN
     Route: 041
     Dates: end: 20130905
  12. TEMOZOLOMIDE. [Suspect]
     Active Substance: TEMOZOLOMIDE
     Dosage: 200 MG/M2, QD
     Route: 041
     Dates: start: 20131105, end: 20131109
  13. TEMOZOLOMIDE. [Suspect]
     Active Substance: TEMOZOLOMIDE
     Dosage: 200 MG/M2, QD
     Route: 041
     Dates: start: 20140407, end: 20140411
  14. TEMODAL [Suspect]
     Active Substance: TEMOZOLOMIDE
     Indication: GLIOBLASTOMA MULTIFORME
     Dosage: UNK
     Route: 048
     Dates: start: 20121126, end: 20130519
  15. URSO [Concomitant]
     Active Substance: URSODIOL
     Dosage: DAILY DOSE UNKNOWN
     Route: 048
     Dates: end: 20140318
  16. ROZEREM [Concomitant]
     Active Substance: RAMELTEON
     Dosage: DAILY DOSE UNKNOWN, FORMULATION POR
     Route: 048
     Dates: end: 20140216
  17. LAXOBERON [Concomitant]
     Active Substance: SODIUM PICOSULFATE
     Dosage: DAILY DOSE UNKNOWN, FORMULATION POR
     Route: 048
     Dates: start: 20130822, end: 20140114
  18. TEMOZOLOMIDE. [Suspect]
     Active Substance: TEMOZOLOMIDE
     Dosage: 200 MG/M2, QD
     Route: 041
     Dates: start: 20131010, end: 20131014
  19. TEMOZOLOMIDE. [Suspect]
     Active Substance: TEMOZOLOMIDE
     Dosage: 200 MG/M2, QD
     Route: 041
     Dates: start: 20140310, end: 20140314
  20. ORGADRONE INJECTION 1.9MG [Concomitant]
     Dosage: DAILY DOSE UNKNOWN
     Route: 042
     Dates: end: 20130908
  21. REFLEX [Concomitant]
     Active Substance: MIRTAZAPINE
     Dosage: DAILY DOSE UNKNOWN, FORMULATION POR
     Route: 048
     Dates: end: 20140205
  22. TEMOZOLOMIDE. [Suspect]
     Active Substance: TEMOZOLOMIDE
     Dosage: 200 MG/M2, QD
     Route: 041
     Dates: start: 20131202, end: 20131206
  23. UBRETID [Concomitant]
     Active Substance: DISTIGMINE BROMIDE
     Dosage: DAILY DOSE UNKNOWN, FORMULATION POR
     Route: 048
     Dates: end: 20140330
  24. LIVALO [Concomitant]
     Active Substance: PITAVASTATIN CALCIUM
     Dosage: DAILY DOSE UNKNOWN, FORMULATION POR
     Route: 048
     Dates: end: 20130827

REACTIONS (3)
  - Disease progression [Fatal]
  - Nausea [Recovered/Resolved]
  - Urinary tract infection [Not Recovered/Not Resolved]

NARRATIVE: CASE EVENT DATE: 20130825
